FAERS Safety Report 9502445 (Version 2)
Quarter: 2013Q3

REPORT INFORMATION
  Report Type: Spontaneous
  Country: CN (occurrence: CN)
  Receive Date: 20130906
  Receipt Date: 20130918
  Transmission Date: 20140515
  Serious: Yes (Other)
  Sender: FDA-Public Use
  Company Number: CN-009507513-1309CHN001959

PATIENT
  Age: 17 Year
  Sex: Female

DRUGS (1)
  1. TIENAM [Suspect]
     Indication: ADVERSE EVENT
     Dosage: 1000 MG, BID
     Route: 041
     Dates: start: 20120102, end: 20120108

REACTIONS (2)
  - Loss of consciousness [Recovered/Resolved]
  - Muscle twitching [Recovered/Resolved]
